FAERS Safety Report 7615705-9 (Version None)
Quarter: 2011Q3

REPORT INFORMATION
  Report Type: 
  Country: None (occurrence: None)
  Receive Date: 20110711
  Receipt Date: 20110630
  Transmission Date: 20111222
  Serious: Yes (Other)
  Sender: FDA-Public Use
  Company Number: CA-001832

PATIENT
  Sex: Female
  Weight: 95 kg

DRUGS (1)
  1. KUVAN [Suspect]
     Indication: PHENYLKETONURIA
     Dosage: (1900 MG QD ORAL)
     Route: 048
     Dates: start: 20101028

REACTIONS (2)
  - DYSTONIA [None]
  - CONVULSION [None]
